FAERS Safety Report 4995198-0 (Version None)
Quarter: 2006Q2

REPORT INFORMATION
  Report Type: 
  Country: None (occurrence: None)
  Receive Date: 20060503
  Receipt Date: 20060412
  Transmission Date: 20061013
  Serious: Yes (Hospitalization)
  Sender: FDA-Public Use
  Company Number: US200604002216

PATIENT
  Age: 58 Year
  Sex: Female

DRUGS (1)
  1. HUMULIN 70/30 [Suspect]
     Dosage: 100 U, OTHER
     Route: 050

REACTIONS (3)
  - FALL [None]
  - POST PROCEDURAL HAEMORRHAGE [None]
  - UPPER LIMB FRACTURE [None]
